FAERS Safety Report 5022597-3 (Version None)
Quarter: 2006Q2

REPORT INFORMATION
  Report Type: 
  Country: None (occurrence: None)
  Receive Date: 20060609
  Receipt Date: 20060530
  Transmission Date: 20061013
  Serious: Yes (Death)
  Sender: FDA-Public Use
  Company Number: BR-ABBOTT-06P-020-0334888-00

PATIENT
  Sex: Female

DRUGS (1)
  1. HUMIRA [Suspect]
     Indication: AMYOTROPHIC LATERAL SCLEROSIS
     Dates: start: 20050101

REACTIONS (1)
  - AMYOTROPHIC LATERAL SCLEROSIS [None]
